FAERS Safety Report 25346384 (Version 1)
Quarter: 2025Q2

REPORT INFORMATION
  Report Type: Spontaneous
  Country: US (occurrence: US)
  Receive Date: 20250522
  Receipt Date: 20250522
  Transmission Date: 20250716
  Serious: Yes (Hospitalization)
  Sender: GALPHARM INTERNATIONAL
  Company Number: US-MLMSERVICE-20250508-PI501890-00031-1

PATIENT
  Age: 60 Year
  Sex: Male

DRUGS (1)
  1. OMEPRAZOLE MAGNESIUM [Suspect]
     Active Substance: OMEPRAZOLE MAGNESIUM
     Indication: Barrett^s oesophagus
     Route: 048

REACTIONS (2)
  - Gastric polyps [Recovered/Resolved]
  - Dysplasia [Recovered/Resolved]
